FAERS Safety Report 19808372 (Version 1)
Quarter: 2021Q3

REPORT INFORMATION
  Report Type: Spontaneous
  Country: US (occurrence: US)
  Receive Date: 20210903
  Receipt Date: 20210903
  Transmission Date: 20211014
  Serious: Yes (Hospitalization)
  Sender: FDA-Public Use
  Company Number: None

PATIENT
  Sex: Female

DRUGS (1)
  1. XELJANZ [Suspect]
     Active Substance: TOFACITINIB CITRATE
     Indication: RHEUMATOID ARTHRITIS
     Route: 048
     Dates: start: 201509

REACTIONS (7)
  - Bronchitis [None]
  - SARS-CoV-2 test negative [None]
  - Therapy interrupted [None]
  - Fatigue [None]
  - Asthma [None]
  - Cough [None]
  - Rhinovirus infection [None]
